FAERS Safety Report 4752175-2 (Version None)
Quarter: 2005Q3

REPORT INFORMATION
  Report Type: 
  Country: None (occurrence: None)
  Receive Date: 20050824
  Receipt Date: 20050824
  Transmission Date: 20060218
  Serious: Yes (Other)
  Sender: FDA-Public Use
  Company Number: None

PATIENT
  Age: 58 Year
  Sex: Male
  Weight: 81.27 kg

DRUGS (8)
  1. DOCETAXEL [Suspect]
     Indication: PROSTATE CANCER
     Dosage: 36MG/M2 D1,8,15 IV
     Route: 042
     Dates: start: 20050425
  2. CAPECITABINE [Suspect]
     Indication: PROSTATE CANCER
     Dosage: 1250 MG/M2 D5-18 PO
     Route: 048
     Dates: start: 20050429
  3. VICODIN [Concomitant]
  4. COMPAZINE [Concomitant]
  5. ZESTORETIC [Concomitant]
  6. GLUCOPHAGE [Concomitant]
  7. AVANDIA [Concomitant]
  8. VIAGRA [Concomitant]

REACTIONS (21)
  - BLOOD CHLORIDE DECREASED [None]
  - BLOOD CREATINE PHOSPHOKINASE INCREASED [None]
  - BLOOD GLUCOSE INCREASED [None]
  - BLOOD POTASSIUM INCREASED [None]
  - DIFFICULTY IN WALKING [None]
  - DRUG TOXICITY [None]
  - HAEMATOCRIT DECREASED [None]
  - HAEMOGLOBIN DECREASED [None]
  - HEMIPARESIS [None]
  - HYPOREFLEXIA [None]
  - ISCHAEMIA [None]
  - MUSCLE INJURY [None]
  - MUSCLE NECROSIS [None]
  - MUSCLE STRAIN [None]
  - MYOPATHY [None]
  - MYOSITIS [None]
  - OSTEOARTHRITIS [None]
  - PAIN [None]
  - PAIN IN EXTREMITY [None]
  - PLATELET COUNT INCREASED [None]
  - SPINAL OSTEOARTHRITIS [None]
